FAERS Safety Report 14183153 (Version 1)
Quarter: 2017Q4

REPORT INFORMATION
  Report Type: Report from Study
  Country: IN (occurrence: IN)
  Receive Date: 20171113
  Receipt Date: 20171113
  Transmission Date: 20180321
  Serious: Yes (Hospitalization, Other)
  Sender: FDA-Public Use
  Company Number: IN-JNJFOC-20171112431

PATIENT
  Age: 26 Year
  Sex: Female

DRUGS (1)
  1. IXAROLA [Suspect]
     Active Substance: RIVAROXABAN
     Indication: PULMONARY EMBOLISM
     Route: 048
     Dates: start: 2016, end: 201707

REACTIONS (8)
  - Diarrhoea [Unknown]
  - Menstruation irregular [Unknown]
  - Off label use [Unknown]
  - Hepatic infection [Unknown]
  - Drug ineffective [Unknown]
  - Right ventricular failure [Unknown]
  - Blood creatinine increased [Unknown]
  - Pyrexia [Unknown]

NARRATIVE: CASE EVENT DATE: 20170624
